FAERS Safety Report 9013967 (Version 1)
Quarter: 2012Q4

REPORT INFORMATION
  Report Type: Spontaneous
  Country: US (occurrence: None)
  Receive Date: 20121231
  Receipt Date: 20121231
  Transmission Date: 20130627
  Serious: Yes (Death, Hospitalization)
  Sender: FDA-Public Use
  Company Number: 2012AP004355

PATIENT
  Age: 79 Year
  Sex: Male

DRUGS (7)
  1. CLOPIDOGREL TABLETS USP [Suspect]
  2. CLOPIDOGREL TABLETS USP [Suspect]
  3. SOTALOL [Suspect]
  4. DABIGATRAN ETEXILATE [Suspect]
  5. DABIGATRAN ETEXILATE [Suspect]
  6. ASPIRIN [Suspect]
  7. ASPIRIN [Suspect]

REACTIONS (6)
  - Epistaxis [None]
  - Melaena [None]
  - Pulse absent [None]
  - Chest pain [None]
  - Bradycardia [None]
  - Cardiac arrest [None]
